FAERS Safety Report 8712038 (Version 2)
Quarter: 2012Q4

REPORT INFORMATION
  Report Type: 
  Country: GB (occurrence: GB)
  Receive Date: 20120807
  Receipt Date: 20121004
  Transmission Date: 20130627
  Serious: Yes (Life-Threatening, Hospitalization)
  Sender: FDA-Public Use
  Company Number: GB-TEVA-351953ISR

PATIENT
  Age: 53 Year
  Sex: Male

DRUGS (5)
  1. SIMVASTATIN [Suspect]
     Dosage: 40 Milligram Daily; At night
     Route: 048
     Dates: start: 20110401, end: 20120610
  2. BISOPROLOL [Concomitant]
     Route: 048
     Dates: start: 20110401
  3. RAMIPRIL [Concomitant]
     Route: 048
     Dates: start: 20110401
  4. ASPIRIN [Concomitant]
     Route: 048
     Dates: start: 20110401
  5. CLOPIDOGREL [Concomitant]
     Route: 048
     Dates: start: 20110401, end: 20120330

REACTIONS (7)
  - Pancreatitis necrotising [Recovering/Resolving]
  - Renal failure [Recovering/Resolving]
  - Intestinal perforation [Recovering/Resolving]
  - Blood creatinine increased [Recovered/Resolved]
  - Blood alkaline phosphatase increased [Recovering/Resolving]
  - White blood cell count increased [Recovered/Resolved]
  - Alanine aminotransferase increased [Recovered/Resolved]
